FAERS Safety Report 12575414 (Version 2)
Quarter: 2018Q2

REPORT INFORMATION
  Report Type: Spontaneous
  Country: US (occurrence: US)
  Receive Date: 20160720
  Receipt Date: 20180622
  Transmission Date: 20180711
  Serious: Yes (Other)
  Sender: FDA-Public Use
  Company Number: US-ASTELLAS-2016US013710

PATIENT
  Sex: Male

DRUGS (2)
  1. VESICARE [Suspect]
     Active Substance: SOLIFENACIN SUCCINATE
     Route: 048
     Dates: start: 20170804
  2. VESICARE [Suspect]
     Active Substance: SOLIFENACIN SUCCINATE
     Indication: HYPERTONIC BLADDER
     Route: 048
     Dates: start: 20160320

REACTIONS (7)
  - Blood pressure increased [Unknown]
  - Constipation [Unknown]
  - Wrong technique in product usage process [Unknown]
  - Urinary retention [Unknown]
  - Drug ineffective [Unknown]
  - Dizziness [Unknown]
  - Drug dose omission [Unknown]
